FAERS Safety Report 20818437 (Version 1)
Quarter: 2022Q2

REPORT INFORMATION
  Report Type: Spontaneous
  Country: CN (occurrence: CN)
  Receive Date: 20220512
  Receipt Date: 20220512
  Transmission Date: 20220721
  Serious: Yes (Other)
  Sender: FDA-Public Use
  Company Number: CN-SA-2022SA160422

PATIENT
  Age: 49 Year
  Sex: Male
  Weight: 45 kg

DRUGS (2)
  1. DOCETAXEL [Suspect]
     Active Substance: DOCETAXEL
     Indication: Oesophageal squamous cell carcinoma
     Dosage: 110 MG, D1
     Dates: start: 202006, end: 202008
  2. NEDAPLATIN [Suspect]
     Active Substance: NEDAPLATIN
     Indication: Oesophageal squamous cell carcinoma
     Dosage: 120 MG, D1
     Dates: start: 202006, end: 202008

REACTIONS (1)
  - Atrial fibrillation [Unknown]
